FAERS Safety Report 8158155-1 (Version None)
Quarter: 2012Q1

REPORT INFORMATION
  Report Type: 
  Country: None (occurrence: None)
  Receive Date: 20120222
  Receipt Date: 20120216
  Transmission Date: 20120608
  Serious: Yes (Hospitalization)
  Sender: FDA-Public Use
  Company Number: US-VERTEX PHARMACEUTICALS INC.-AE-2012-002415

PATIENT
  Sex: Female

DRUGS (4)
  1. RIBAVIRIN [Concomitant]
     Route: 048
     Dates: start: 20111101
  2. INCIVEK [Suspect]
     Indication: HEPATITIS C
     Route: 048
     Dates: start: 20111012, end: 20120104
  3. PEGASYS [Concomitant]
     Indication: HEPATITIS C
     Route: 058
     Dates: start: 20111012
  4. RIBAVIRIN [Concomitant]
     Indication: HEPATITIS C
     Route: 048
     Dates: start: 20111012, end: 20111101

REACTIONS (3)
  - BLOOD POTASSIUM DECREASED [None]
  - BLOOD MAGNESIUM DECREASED [None]
  - FATIGUE [None]
